FAERS Safety Report 25718472 (Version 1)
Quarter: 2025Q3

REPORT INFORMATION
  Report Type: Spontaneous
  Country: US (occurrence: US)
  Receive Date: 20250823
  Receipt Date: 20250823
  Transmission Date: 20251020
  Serious: No
  Sender: SANOFI AVENTIS
  Company Number: US-SANOFI-02626353

PATIENT
  Age: 67 Year
  Sex: Female

DRUGS (8)
  1. DUPIXENT [Suspect]
     Active Substance: DUPILUMAB
     Indication: Rash
     Dosage: 300 MG, QOW
     Dates: start: 202507
  2. DUPIXENT [Suspect]
     Active Substance: DUPILUMAB
     Indication: Pain in extremity
  3. DUPIXENT [Suspect]
     Active Substance: DUPILUMAB
     Indication: Scabies
  4. METFORMIN [Concomitant]
     Active Substance: METFORMIN HYDROCHLORIDE
  5. CLONIDINE [Concomitant]
     Active Substance: CLONIDINE
  6. VENLAFAXINE [Concomitant]
     Active Substance: VENLAFAXINE HYDROCHLORIDE
  7. ELIQUIS [Concomitant]
     Active Substance: APIXABAN
  8. METOPROLOL [Concomitant]
     Active Substance: METOPROLOL

REACTIONS (1)
  - Off label use [Unknown]

NARRATIVE: CASE EVENT DATE: 20250701
